FAERS Safety Report 7364683-9 (Version None)
Quarter: 2011Q1

REPORT INFORMATION
  Report Type: 
  Country: None (occurrence: None)
  Receive Date: 20110321
  Receipt Date: 20110310
  Transmission Date: 20110831
  Serious: Yes (Other)
  Sender: FDA-Public Use
  Company Number: US-GENZYME-CERZ-1001942

PATIENT
  Age: 15 Year
  Sex: Female
  Weight: 26 kg

DRUGS (1)
  1. CEREZYME [Suspect]
     Indication: GAUCHER'S DISEASE
     Dosage: 30 U/KG, Q2W
     Route: 042

REACTIONS (8)
  - DYSGRAPHIA [None]
  - KYPHOSCOLIOSIS [None]
  - READING DISORDER [None]
  - RESPIRATORY TRACT INFECTION [None]
  - PNEUMONIA [None]
  - COGNITIVE DISORDER [None]
  - GROWTH RETARDATION [None]
  - GENERAL PHYSICAL HEALTH DETERIORATION [None]
